FAERS Safety Report 7542142-8 (Version None)
Quarter: 2011Q2

REPORT INFORMATION
  Report Type: 
  Country: None (occurrence: None)
  Receive Date: 20110524
  Receipt Date: 20110329
  Transmission Date: 20111010
  Serious: No
  Sender: FDA-Public Use
  Company Number: 030189

PATIENT
  Sex: Female
  Weight: 107.5 kg

DRUGS (9)
  1. ACIPHEX [Concomitant]
  2. PERCOCET [Concomitant]
  3. PREDNISONE [Concomitant]
  4. LASIX [Concomitant]
  5. CIMZIA [Suspect]
     Indication: CROHN'S DISEASE
     Dosage: (400 MG 1X/4 WEEKS SUBCUTANEOUS)
     Route: 058
     Dates: start: 20110101
  6. SYNTHROID [Concomitant]
  7. ASACOL [Concomitant]
  8. GABAPENTIN [Concomitant]
  9. TOPIRAMATE [Concomitant]

REACTIONS (2)
  - OEDEMA PERIPHERAL [None]
  - PAIN IN EXTREMITY [None]
